FAERS Safety Report 5279974-5 (Version None)
Quarter: 2007Q1

REPORT INFORMATION
  Report Type: 
  Country: None (occurrence: None)
  Receive Date: 20070327
  Receipt Date: 20070327
  Transmission Date: 20070707
  Serious: No
  Sender: FDA-Public Use
  Company Number: None

PATIENT
  Age: 45 Year
  Sex: Male
  Weight: 81.6475 kg

DRUGS (1)
  1. ZICAM [Suspect]
     Indication: NASOPHARYNGITIS
     Dosage: SINGLE DOSE PER NOSTRIL 2X DAILY FOR 3 DAY ENDOSINUSIA
     Route: 006
     Dates: start: 20050715, end: 20050718

REACTIONS (1)
  - ANOSMIA [None]
